FAERS Safety Report 13614113 (Version 3)
Quarter: 2017Q3

REPORT INFORMATION
  Report Type: Report from Study
  Country: CZ (occurrence: CZ)
  Receive Date: 20170606
  Receipt Date: 20170706
  Transmission Date: 20171127
  Serious: Yes (Life-Threatening, Hospitalization, Other)
  Sender: FDA-Public Use
  Company Number: PHHY2017CZ078443

PATIENT
  Age: 46 Year
  Sex: Female

DRUGS (12)
  1. GLIVEC [Suspect]
     Active Substance: IMATINIB MESYLATE
     Indication: CHRONIC MYELOID LEUKAEMIA
     Dosage: 400 MG, UNK
     Route: 065
     Dates: start: 20131023, end: 20131104
  2. GLIVEC [Suspect]
     Active Substance: IMATINIB MESYLATE
     Dosage: 270 MG, UNK
     Route: 065
     Dates: start: 20151006, end: 20160111
  3. GLIVEC [Suspect]
     Active Substance: IMATINIB MESYLATE
     Dosage: 200 MG, UNK
     Route: 065
     Dates: start: 20131112, end: 20131118
  4. GLIVEC [Suspect]
     Active Substance: IMATINIB MESYLATE
     Dosage: 300 MG, UNK
     Route: 065
     Dates: start: 20131202, end: 20131230
  5. GLIVEC [Suspect]
     Active Substance: IMATINIB MESYLATE
     Dosage: 300 MG, UNK
     Route: 065
     Dates: start: 20160112, end: 20170102
  6. GLIVEC [Suspect]
     Active Substance: IMATINIB MESYLATE
     Dosage: UNK
     Route: 065
     Dates: start: 20131119, end: 20131201
  7. GLIVEC [Suspect]
     Active Substance: IMATINIB MESYLATE
     Dosage: 300 MG, UNK
     Route: 065
     Dates: start: 20170103, end: 20170206
  8. GLIVEC [Suspect]
     Active Substance: IMATINIB MESYLATE
     Dosage: 200 MG, UNK
     Route: 065
     Dates: start: 20140106, end: 20140127
  9. GLIVEC [Suspect]
     Active Substance: IMATINIB MESYLATE
     Dosage: 240 MG, UNK
     Route: 065
     Dates: start: 20150414, end: 20151005
  10. GLIVEC [Suspect]
     Active Substance: IMATINIB MESYLATE
     Dosage: UNK
     Route: 065
     Dates: start: 20131231, end: 20140105
  11. GLIVEC [Suspect]
     Active Substance: IMATINIB MESYLATE
     Dosage: 250 MG, UNK
     Route: 065
     Dates: start: 20140128, end: 20150413
  12. GLIVEC [Suspect]
     Active Substance: IMATINIB MESYLATE
     Dosage: 300 MG, UNK
     Route: 065
     Dates: start: 20131105, end: 20131111

REACTIONS (10)
  - Laboratory test abnormal [Recovered/Resolved]
  - Therapeutic response decreased [Unknown]
  - Aspartate aminotransferase abnormal [Unknown]
  - Thrombocytopenia [Unknown]
  - Cystitis [Unknown]
  - Hepatotoxicity [Unknown]
  - Hepatic enzyme increased [Unknown]
  - Haematotoxicity [Unknown]
  - Alanine aminotransferase abnormal [Unknown]
  - Neutropenia [Unknown]

NARRATIVE: CASE EVENT DATE: 201404
